FAERS Safety Report 14289372 (Version 1)
Quarter: 2017Q4

REPORT INFORMATION
  Report Type: Spontaneous
  Country: ES (occurrence: ES)
  Receive Date: 20171214
  Receipt Date: 20171214
  Transmission Date: 20180321
  Serious: Yes (Death, Hospitalization)
  Sender: FDA-Public Use
  Company Number: ES-EISAI MEDICAL RESEARCH-EC-2017-034133

PATIENT
  Age: 61 Year
  Sex: Female

DRUGS (1)
  1. LENVIMA [Suspect]
     Active Substance: LENVATINIB
     Indication: OVARIAN STROMAL CANCER
     Route: 048
     Dates: start: 20170601, end: 20171201

REACTIONS (5)
  - Decreased appetite [Unknown]
  - Mucosal inflammation [Unknown]
  - Weight decreased [Unknown]
  - Intestinal perforation [Fatal]
  - Hypertension [Unknown]

NARRATIVE: CASE EVENT DATE: 201706
